FAERS Safety Report 25643660 (Version 2)
Quarter: 2025Q4

REPORT INFORMATION
  Report Type: Spontaneous
  Country: US (occurrence: US)
  Receive Date: 20250805
  Receipt Date: 20251117
  Transmission Date: 20260118
  Serious: Yes (Life-Threatening, Hospitalization)
  Sender: ROCHE
  Company Number: US-ROCHE-10000354931

PATIENT

DRUGS (1)
  1. GAZYVA [Suspect]
     Active Substance: OBINUTUZUMAB
     Indication: Product used for unknown indication
     Route: 065

REACTIONS (1)
  - Anaphylactic reaction [Unknown]
